FAERS Safety Report 6465477-9 (Version None)
Quarter: 2009Q4

REPORT INFORMATION
  Report Type: 
  Country: None (occurrence: None)
  Receive Date: 20091124
  Receipt Date: 20091119
  Transmission Date: 20100525
  Serious: Yes (Life-Threatening, Hospitalization, Other)
  Sender: FDA-Public Use
  Company Number: 2009SP022666

PATIENT
  Age: 49 Year
  Sex: Female
  Weight: 48 kg

DRUGS (6)
  1. TEMODAL [Suspect]
     Indication: ANAPLASTIC ASTROCYTOMA
     Dosage: 75 MG/M2; QD; PO, 150 MG/M2; QD; PO, 200 MG/M2; ; PO
     Route: 048
     Dates: start: 20070711, end: 20070821
  2. TEMODAL [Suspect]
     Indication: ANAPLASTIC ASTROCYTOMA
     Dosage: 75 MG/M2; QD; PO, 150 MG/M2; QD; PO, 200 MG/M2; ; PO
     Route: 048
     Dates: start: 20070921, end: 20070925
  3. TEMODAL [Suspect]
     Indication: ANAPLASTIC ASTROCYTOMA
     Dosage: 75 MG/M2; QD; PO, 150 MG/M2; QD; PO, 200 MG/M2; ; PO
     Route: 048
     Dates: start: 20071020, end: 20090526
  4. DEPAKENE [Concomitant]
  5. SOLANAX [Concomitant]
  6. BENZALIN [Concomitant]

REACTIONS (7)
  - ANAEMIA [None]
  - ATELECTASIS [None]
  - CHEST PAIN [None]
  - LUNG NEOPLASM MALIGNANT [None]
  - LYMPHADENOPATHY [None]
  - METASTASES TO LUNG [None]
  - PLATELET COUNT DECREASED [None]
